FAERS Safety Report 5392554-6 (Version None)
Quarter: 2007Q3

REPORT INFORMATION
  Report Type: 
  Country: None (occurrence: None)
  Receive Date: 20070720
  Receipt Date: 20070717
  Transmission Date: 20080115
  Serious: Yes (Other)
  Sender: FDA-Public Use
  Company Number: ZA-BOEHRINGER INGELHEIM PHARMACEUTICALS, INC.-2007-DE-04187GD

PATIENT

DRUGS (4)
  1. TRIOMUNE [Suspect]
     Indication: HIV INFECTION
     Dosage: NEVIRAPINE 200 MG, STAVUDINE 40 MG, LAMIVUDINE 150 MG
  2. BLEOMYCIN [Suspect]
     Indication: KAPOSI'S SARCOMA
     Dosage: 10 U/ME2
     Route: 051
  3. DOXORUBICIN HCL [Suspect]
     Indication: KAPOSI'S SARCOMA
     Route: 051
  4. VINCRISTINE [Suspect]
     Indication: KAPOSI'S SARCOMA
     Route: 051

REACTIONS (1)
  - DISEASE PROGRESSION [None]
